FAERS Safety Report 22331414 (Version 1)
Quarter: 2023Q2

REPORT INFORMATION
  Report Type: Spontaneous
  Country: US (occurrence: None)
  Receive Date: 20230515
  Receipt Date: 20230515
  Transmission Date: 20230721
  Serious: Yes (Disabling)
  Sender: FDA-Public Use
  Company Number: None

PATIENT
  Age: 22 Year
  Sex: Female
  Weight: 67.5 kg

DRUGS (1)
  1. LOTEPREDNOL ETABONATE [Suspect]
     Active Substance: LOTEPREDNOL ETABONATE
     Indication: Blepharitis
     Dosage: OTHER QUANTITY : 1 1 EYELID DROP;?FREQUENCY : 3 TIMES A DAY;?
     Route: 061
     Dates: start: 20221202, end: 20230331

REACTIONS (4)
  - Blepharitis [None]
  - Condition aggravated [None]
  - Recalled product administered [None]
  - Eye pain [None]

NARRATIVE: CASE EVENT DATE: 20230325
